FAERS Safety Report 12092372 (Version 1)
Quarter: 2016Q1

REPORT INFORMATION
  Report Type: Spontaneous
  Country: US (occurrence: None)
  Receive Date: 20160217
  Receipt Date: 20160217
  Transmission Date: 20160526
  Serious: No
  Sender: FDA-Public Use
  Company Number: None

PATIENT
  Age: 56 Year
  Sex: Female

DRUGS (6)
  1. PAROXETINE [Concomitant]
     Active Substance: PAROXETINE\PAROXETINE HYDROCHLORIDE
  2. IBRANCE [Suspect]
     Active Substance: PALBOCICLIB
     Indication: BREAST CANCER
     Dosage: 1 CAP DAILY X 21 DAYS PO
     Route: 048
     Dates: start: 20150617
  3. WARFARIN [Concomitant]
     Active Substance: WARFARIN
  4. ANAASTROZOLE [Concomitant]
  5. OXYCONTIN [Concomitant]
     Active Substance: OXYCODONE HYDROCHLORIDE
  6. SPIRONOLACT [Concomitant]

REACTIONS (1)
  - Depressed mood [None]

NARRATIVE: CASE EVENT DATE: 201602
